FAERS Safety Report 5602052-X (Version None)
Quarter: 2008Q1

REPORT INFORMATION
  Report Type: 
  Country: None (occurrence: None)
  Receive Date: 20080122
  Receipt Date: 20080122
  Transmission Date: 20080703
  Serious: Yes (Other)
  Sender: FDA-Public Use
  Company Number: None

PATIENT
  Age: 44 Year
  Sex: Male
  Weight: 141 kg

DRUGS (1)
  1. HEPARIN SODIUM [Suspect]
     Indication: PULMONARY EMBOLISM
     Dosage: 2200 UNITS PER HOUR IV DRIP
     Route: 041
     Dates: start: 20080111, end: 20080121

REACTIONS (3)
  - BLOOD CULTURE POSITIVE [None]
  - SERRATIA INFECTION [None]
  - THERAPEUTIC PRODUCT CONTAMINATION [None]
